FAERS Safety Report 17599035 (Version 7)
Quarter: 2021Q4

REPORT INFORMATION
  Report Type: Spontaneous
  Country: CA (occurrence: CA)
  Receive Date: 20200330
  Receipt Date: 20211123
  Transmission Date: 20220303
  Serious: Yes (Other)
  Sender: FDA-Public Use
  Company Number: CA-PFIZER INC-2018311183

PATIENT
  Age: 58 Year
  Sex: Female
  Weight: 83.447 kg

DRUGS (12)
  1. XELJANZ [Suspect]
     Active Substance: TOFACITINIB CITRATE
     Indication: Rheumatoid arthritis
     Dosage: 5 MG, 2X/DAY
     Route: 048
     Dates: start: 20180511, end: 2021
  2. ATENOLOL [Concomitant]
     Active Substance: ATENOLOL
     Dosage: 50 MG, Q (EVERY)
     Route: 048
  3. CHOLECALCIFEROL [Concomitant]
     Active Substance: CHOLECALCIFEROL
     Dosage: 1000 IU (1000 UNITS, FREQUENCY UNKNOWN, STATUS: ONGOING   )
     Route: 048
  4. PERINDOPRIL ERBUMINE [Concomitant]
     Active Substance: PERINDOPRIL ERBUMINE
     Dosage: 4 MG, Q (EVERY)
     Route: 048
  5. FOLIC ACID [Concomitant]
     Active Substance: FOLIC ACID
     Dosage: 5 MG, WEEKLY (ONCE WEEKLY, THE DAY AFTER MTX)
     Route: 048
  6. LYRICA [Concomitant]
     Active Substance: PREGABALIN
     Indication: Sleep disorder
     Dosage: 75 MG, 1X/DAY (AT BEDTIME, STATUS: DISCONTINUED)
     Route: 048
     Dates: start: 201810
  7. LYRICA [Concomitant]
     Active Substance: PREGABALIN
     Dosage: 300 MG, 1X/DAY HS (AT BEDTIME, STATUS: UNKNOWN)
     Route: 048
  8. METHOTREXATE [Concomitant]
     Active Substance: METHOTREXATE
     Indication: Rheumatoid arthritis
     Dosage: 25 MG, WEEKLY
     Route: 058
     Dates: start: 2003, end: 2021
  9. RANITIDINE [Concomitant]
     Active Substance: RANITIDINE
     Dosage: 150 MG, Q (EVERY)
     Route: 048
  10. DICLOFENAC SODIUM [Concomitant]
     Active Substance: DICLOFENAC SODIUM
     Dosage: UNK
     Route: 061
  11. CELEBREX [Concomitant]
     Active Substance: CELECOXIB
     Indication: Rheumatoid arthritis
     Dosage: 200 UG, 2X/DAY
     Route: 048
     Dates: start: 2018
  12. CELEBREX [Concomitant]
     Active Substance: CELECOXIB
     Dosage: UNK

REACTIONS (18)
  - Joint dislocation [Unknown]
  - Staphylococcal infection [Not Recovered/Not Resolved]
  - Drug ineffective [Not Recovered/Not Resolved]
  - Arthralgia [Unknown]
  - Arthralgia [Unknown]
  - Blood pressure increased [Unknown]
  - Crepitations [Unknown]
  - Fibromyalgia [Not Recovered/Not Resolved]
  - Gait disturbance [Unknown]
  - Inflammation [Recovering/Resolving]
  - Infection [Unknown]
  - Myofascial pain syndrome [Not Recovered/Not Resolved]
  - Mobility decreased [Unknown]
  - Musculoskeletal stiffness [Unknown]
  - Osteoarthritis [Not Recovered/Not Resolved]
  - Pain [Not Recovered/Not Resolved]
  - Red blood cell sedimentation rate increased [Unknown]
  - Sleep disorder [Not Recovered/Not Resolved]

NARRATIVE: CASE EVENT DATE: 20210101
